FAERS Safety Report 14340253 (Version 2)
Quarter: 2018Q3

REPORT INFORMATION
  Report Type: Spontaneous
  Country: ES (occurrence: ES)
  Receive Date: 20180101
  Receipt Date: 20180724
  Transmission Date: 20181010
  Serious: Yes (Death, Hospitalization)
  Sender: FDA-Public Use
  Company Number: ES-TEVA-2017-ES-838069

PATIENT
  Age: 88 Year

DRUGS (4)
  1. RISPERDAL [Suspect]
     Active Substance: RISPERIDONE
     Dosage: 1/2?0?1/2
     Route: 048
     Dates: start: 2010
  2. DUROGESIC MATRIX 50 MICROGRAMOS/H PARCHES TRANSDERMICOS [Suspect]
     Active Substance: FENTANYL
     Indication: BACK PAIN
     Dosage: 1/2 PARCHE/72 HORAS
     Route: 062
     Dates: start: 20170626, end: 20170628
  3. GABAPENTINA 300 MG C?PSULA [Suspect]
     Active Substance: GABAPENTIN
     Indication: BACK PAIN
     Dosage: 1?1?1
     Route: 048
     Dates: start: 20170626
  4. KEPPRA [Suspect]
     Active Substance: LEVETIRACETAM
     Route: 048
     Dates: start: 2017

REACTIONS (1)
  - Depressed level of consciousness [Fatal]

NARRATIVE: CASE EVENT DATE: 20170627
